FAERS Safety Report 6714241-1 (Version None)
Quarter: 2010Q2

REPORT INFORMATION
  Report Type: 
  Country: None (occurrence: None)
  Receive Date: 20100506
  Receipt Date: 20090313
  Transmission Date: 20101027
  Serious: No
  Sender: FDA-Public Use
  Company Number: US-BAUSCH-2009BL001141

PATIENT
  Age: 74 Year
  Sex: Female
  Weight: 93 kg

DRUGS (13)
  1. LOTEMAX [Suspect]
     Indication: DRY EYE
     Route: 047
     Dates: start: 20090217, end: 20090302
  2. LOTEMAX [Suspect]
     Indication: OFF LABEL USE
     Route: 047
     Dates: start: 20090217, end: 20090302
  3. TRAVATAN [Concomitant]
     Indication: GLAUCOMA
     Route: 047
     Dates: start: 20080901
  4. WARFARIN [Concomitant]
     Indication: ANTICOAGULANT THERAPY
     Route: 048
     Dates: start: 20080901
  5. OMEPRAZOLE [Concomitant]
     Indication: GASTROOESOPHAGEAL REFLUX DISEASE
     Route: 048
     Dates: start: 20080301
  6. METOPROLOL [Concomitant]
     Indication: HYPERTENSION
     Route: 048
     Dates: start: 20081201
  7. FLUOXETINE /N/A/ [Concomitant]
     Indication: DEPRESSION
     Route: 048
     Dates: start: 20070301
  8. CYCLOBENZAPRINE [Concomitant]
     Indication: FIBROMYALGIA
     Route: 048
  9. ASPIRIN [Concomitant]
     Route: 048
  10. MULTI-VITAMINS [Concomitant]
  11. VITAMIN B-12 [Concomitant]
  12. CALCIUM [Concomitant]
  13. RESTASIS [Concomitant]
     Indication: DRY EYE
     Route: 047
     Dates: start: 20090218, end: 20090302

REACTIONS (1)
  - EYE IRRITATION [None]
